FAERS Safety Report 5696667-0 (Version None)
Quarter: 2008Q2

REPORT INFORMATION
  Report Type: 
  Country: None (occurrence: None)
  Receive Date: 20080408
  Receipt Date: 20070108
  Transmission Date: 20081010
  Serious: Yes (Hospitalization, Other)
  Sender: FDA-Public Use
  Company Number: US-BAYER-US-2006-027157

PATIENT
  Age: 19 Year
  Sex: Female
  Weight: 59 kg

DRUGS (3)
  1. YASMIN [Suspect]
     Indication: ORAL CONTRACEPTION
     Route: 048
     Dates: start: 20040101, end: 20060101
  2. LEXAPRO [Concomitant]
  3. LORAZEPAM [Concomitant]

REACTIONS (3)
  - GALLBLADDER PAIN [None]
  - GASTROINTESTINAL DISORDER [None]
  - SCAR [None]
